FAERS Safety Report 9132505 (Version 2)
Quarter: 2013Q1

REPORT INFORMATION
  Report Type: Report from Study
  Country: FR (occurrence: FR)
  Receive Date: 20130301
  Receipt Date: 20130312
  Transmission Date: 20140127
  Serious: Yes (Death)
  Sender: FDA-Public Use
  Company Number: FR-GLAXOSMITHKLINE-B0870297A

PATIENT
  Age: 59 Year
  Sex: Male
  Weight: 57 kg

DRUGS (11)
  1. ZANAMIVIR [Suspect]
     Indication: INFLUENZA
     Dosage: 600MG TWICE PER DAY
     Route: 042
     Dates: start: 20130201, end: 20130205
  2. OSELTAMIVIR [Concomitant]
     Dosage: 150MG TWICE PER DAY
  3. CHEMOTHERAPY [Concomitant]
     Indication: ACUTE LYMPHOCYTIC LEUKAEMIA
  4. AMBISOME [Concomitant]
     Dosage: 600MG PER DAY
  5. CANCIDAS [Concomitant]
     Dosage: 80MG PER DAY
  6. MERONEM [Concomitant]
     Dosage: 2G PER DAY
  7. BACTRIM [Concomitant]
  8. ROVAMYCINE [Concomitant]
     Dosage: 3U6 THREE TIMES PER DAY
  9. NOXAFIL [Concomitant]
     Dosage: 200MG FOUR TIMES PER DAY
  10. CYMEVAN [Concomitant]
     Dosage: 250MG TWICE PER DAY
  11. ZYVOXID [Concomitant]
     Dosage: 600MG TWICE PER DAY

REACTIONS (1)
  - Death [Fatal]
